FAERS Safety Report 17024236 (Version 1)
Quarter: 2019Q4

REPORT INFORMATION
  Report Type: Spontaneous
  Country: ES (occurrence: ES)
  Receive Date: 20191113
  Receipt Date: 20191113
  Transmission Date: 20200122
  Serious: Yes (Other)
  Sender: FDA-Public Use
  Company Number: ES-SUN PHARMACEUTICAL INDUSTRIES LTD-2019RR-227297

PATIENT
  Age: 83 Year
  Sex: Female

DRUGS (6)
  1. IXIA PLUS 40 MG/12,5 MG COMPRIMIDOS RECUBIERTOS CON PELICULA , 28 C... [Concomitant]
     Indication: HYPERTENSION
     Dosage: 40 MILLIGRAM, DAILY
     Route: 048
     Dates: start: 20161017, end: 20180213
  2. PAROXETINA (2586A) [Concomitant]
     Active Substance: PAROXETINE
     Indication: DEPRESSION
     Dosage: 20 MILLIGRAM, DAILY
     Route: 048
     Dates: start: 20170112, end: 20180213
  3. WARFARINA SODICA (3221SO) [Interacting]
     Active Substance: WARFARIN SODIUM
     Indication: ATRIAL FIBRILLATION
     Dosage: ()
     Route: 048
     Dates: start: 20131130, end: 20180213
  4. ATENOLOL (356A) [Concomitant]
     Active Substance: ATENOLOL
     Indication: ATRIAL FIBRILLATION
     Dosage: 100 MILLIGRAM, DAILY
     Route: 048
     Dates: start: 2017, end: 20180213
  5. OMEPRAZOLE. [Suspect]
     Active Substance: OMEPRAZOLE
     Indication: PROPHYLAXIS
     Dosage: 20 MILLIGRAM, DAILY
     Route: 048
     Dates: start: 2017
  6. SERC 16 MG COMPRIMIDOS , 30 COMPRIMIDOS [Concomitant]
     Indication: VERTIGO POSITIONAL
     Dosage: 16 MILLIGRAM, DAILY
     Route: 048
     Dates: start: 20150325, end: 20180213

REACTIONS (1)
  - Subdural haematoma [Recovering/Resolving]

NARRATIVE: CASE EVENT DATE: 20180210
